FAERS Safety Report 25310976 (Version 1)
Quarter: 2025Q2

REPORT INFORMATION
  Report Type: Spontaneous
  Country: CL (occurrence: None)
  Receive Date: 20250514
  Receipt Date: 20250514
  Transmission Date: 20250716
  Serious: Yes (Other)
  Sender: ENCUBE ETHICALS
  Company Number: CL-ENCUBE-001732

PATIENT
  Age: 61 Year
  Sex: Male

DRUGS (1)
  1. GENTAMICIN SULFATE [Suspect]
     Active Substance: GENTAMICIN SULFATE
     Indication: Product used for unknown indication

REACTIONS (16)
  - VIth nerve paralysis [Recovered/Resolved]
  - Disorientation [Recovered/Resolved]
  - Paraparesis [Recovered/Resolved]
  - Hypoaesthesia [Recovered/Resolved]
  - Dysmetria [Recovered/Resolved]
  - Dysarthria [Recovered/Resolved]
  - Vertigo [Unknown]
  - Ataxia [Not Recovered/Not Resolved]
  - Dizziness [Not Recovered/Not Resolved]
  - Nystagmus [Unknown]
  - Wrong product administered [Unknown]
  - Acute vestibular syndrome [Unknown]
  - Accidental exposure to product [Unknown]
  - Ototoxicity [Not Recovered/Not Resolved]
  - Neurotoxicity [Recovered/Resolved]
  - Balance disorder [Not Recovered/Not Resolved]
